FAERS Safety Report 5753473-6 (Version None)
Quarter: 2008Q2

REPORT INFORMATION
  Report Type: 
  Country: None (occurrence: None)
  Receive Date: 20080530
  Receipt Date: 20080519
  Transmission Date: 20081010
  Serious: Yes (Life-Threatening, Hospitalization)
  Sender: FDA-Public Use
  Company Number: FR-AMGEN-UK281012

PATIENT
  Sex: Female

DRUGS (5)
  1. NEUPOGEN [Suspect]
     Indication: CHEMOTHERAPY
     Route: 058
     Dates: start: 20080201, end: 20080223
  2. MABTHERA [Suspect]
     Route: 042
     Dates: start: 20080121, end: 20080213
  3. ENDOXAN [Concomitant]
     Dates: start: 20080121
  4. ONCOVIN [Concomitant]
     Dates: start: 20080121
  5. ADRIAMYCIN PFS [Concomitant]
     Dates: start: 20080121

REACTIONS (1)
  - INTERSTITIAL LUNG DISEASE [None]
